FAERS Safety Report 12805684 (Version 1)
Quarter: 2016Q4

REPORT INFORMATION
  Report Type: Spontaneous
  Country: US (occurrence: US)
  Receive Date: 20161004
  Receipt Date: 20161004
  Transmission Date: 20170207
  Serious: No
  Sender: FDA-Public Use
  Company Number: US-009507513-1610USA000911

PATIENT
  Sex: Female

DRUGS (3)
  1. FLONASE [Concomitant]
     Active Substance: FLUTICASONE PROPIONATE
  2. ALLEGRA [Concomitant]
     Active Substance: FEXOFENADINE HYDROCHLORIDE
  3. PROVENTIL [Suspect]
     Active Substance: ALBUTEROL
     Indication: ALLERGIC BRONCHITIS
     Dosage: 2 PUFFS, EVERY 4 HOURS AS NEEDED, (ROUTE REPORTED AS ORAL INHALATION)
     Route: 055
     Dates: start: 20160917

REACTIONS (2)
  - Product quality issue [Unknown]
  - Wheezing [Not Recovered/Not Resolved]

NARRATIVE: CASE EVENT DATE: 2016
